FAERS Safety Report 8175482-2 (Version None)
Quarter: 2012Q1

REPORT INFORMATION
  Report Type: 
  Country: None (occurrence: None)
  Receive Date: 20120229
  Receipt Date: 20120221
  Transmission Date: 20120608
  Serious: Yes (Other)
  Sender: FDA-Public Use
  Company Number: US-ASTRAZENECA-2011SE14043

PATIENT
  Age: 82 Year
  Sex: Female

DRUGS (2)
  1. CRESTOR [Suspect]
     Route: 048
  2. CRESTOR [Suspect]
     Route: 048

REACTIONS (10)
  - CEREBROVASCULAR ACCIDENT [None]
  - PULMONARY MASS [None]
  - THYROID MASS [None]
  - EAR PAIN [None]
  - CARDIAC DISORDER [None]
  - HERPES ZOSTER [None]
  - RENAL FAILURE [None]
  - DIABETES MELLITUS [None]
  - FALL [None]
  - HEPATIC MASS [None]
